FAERS Safety Report 16432807 (Version 3)
Quarter: 2019Q4

REPORT INFORMATION
  Report Type: Report from Study
  Country: US (occurrence: US)
  Receive Date: 20190614
  Receipt Date: 20191001
  Transmission Date: 20200122
  Serious: Yes (Hospitalization)
  Sender: FDA-Public Use
  Company Number: US-TAIHO ONCOLOGY  INC-EU-2019-01959

PATIENT
  Age: 80 Year
  Sex: Male

DRUGS (22)
  1. PROVENTIL HFA [Concomitant]
     Active Substance: ALBUTEROL SULFATE
     Indication: WHEEZING
     Dosage: 90 MCG/ACTUATION INHALER?AS NEEDED
  2. FOLIC ACID. [Concomitant]
     Active Substance: FOLIC ACID
  3. ZESTRIL [Concomitant]
     Active Substance: LISINOPRIL
     Route: 048
  4. FISH OIL [Concomitant]
     Active Substance: FISH OIL
     Dosage: 360-1200MG?WITH BREAKFAST
     Route: 048
  5. LONSURF [Suspect]
     Active Substance: TIPIRACIL HYDROCHLORIDE\TRIFLURIDINE
     Indication: PRODUCT USED FOR UNKNOWN INDICATION
     Dosage: CURRENT CYCLE UNKNOWN?LONSURF WAS INTERRUPTED ON 07/JUN/2019 AND RESUMED ON 24/JUN/2019
     Route: 048
     Dates: start: 20190520
  6. COUMADIN [Concomitant]
     Active Substance: WARFARIN SODIUM
     Dosage: 1  TABLET (5MG) ON MONDAY AND FRIDAY?1.5 TABLET (7.5 MG) ON SUNDAY, TUESDAY, WEDNESDAY, THURSDAY AND
  7. CALCIUM-CARBONATE-VITAMIN D3 [Concomitant]
     Dosage: 500MG(1250MG)-200UNIT PER TABLET
     Route: 048
  8. TRIDERM [Concomitant]
     Active Substance: TRIAMCINOLONE ACETONIDE
     Dosage: TO AFFECTED AREA
  9. VITAMIN D [Concomitant]
     Active Substance: VITAMIN D NOS
     Route: 048
  10. PROSCAR [Concomitant]
     Active Substance: FINASTERIDE
  11. TOPROL XL [Concomitant]
     Active Substance: METOPROLOL SUCCINATE
     Dosage: ER?TB24
     Route: 048
  12. ZOLOFT [Concomitant]
     Active Substance: SERTRALINE HYDROCHLORIDE
     Route: 048
  13. VITAMIN B COMPLEX [Concomitant]
     Active Substance: CYANOCOBALAMIN\DEXPANTHENOL\NIACINAMIDE\PYRIDOXINE HYDROCHLORIDE\RIBOFLAVIN 5^-PHOSPHATE SODIUM\THIAMINE HYDROCHLORIDE\VITAMIN B COMPLEX
     Route: 048
  14. PRAVASTATIN. [Concomitant]
     Active Substance: PRAVASTATIN
     Route: 048
  15. ASPIRIN ENTERIC COATED [Concomitant]
     Active Substance: ASPIRIN
     Route: 048
  16. BENADRYL [Concomitant]
     Active Substance: DIPHENHYDRAMINE HYDROCHLORIDE
     Indication: SEDATION
     Dosage: AT BEDTIME
     Route: 048
  17. CULTURELLE [Concomitant]
     Active Substance: LACTOBACILLUS RHAMNOSUS
     Dosage: 10 BILLION CELL
     Route: 048
  18. PRINIVIL [Concomitant]
     Active Substance: LISINOPRIL
     Route: 048
  19. LASIX [Concomitant]
     Active Substance: FUROSEMIDE
     Route: 048
  20. TRENTAL [Concomitant]
     Active Substance: PENTOXIFYLLINE
     Dosage: CR
     Route: 048
  21. SYSTANE ULTRA [Concomitant]
     Active Substance: POLYETHYLENE GLYCOL 400\PROPYLENE GLYCOL
     Dosage: PF
     Route: 047
  22. FLOMAX [Concomitant]
     Active Substance: TAMSULOSIN HYDROCHLORIDE
     Dosage: ER?AT BEDTIME
     Route: 048

REACTIONS (2)
  - Pulmonary oedema [Unknown]
  - Dyspnoea exertional [Recovered/Resolved]

NARRATIVE: CASE EVENT DATE: 20190604
